FAERS Safety Report 24327656 (Version 1)
Quarter: 2024Q3

REPORT INFORMATION
  Report Type: Spontaneous
  Country: US (occurrence: None)
  Receive Date: 20240916
  Receipt Date: 20240916
  Transmission Date: 20241017
  Serious: Yes (Hospitalization)
  Sender: Public
  Company Number: None

PATIENT
  Sex: Male
  Weight: 92 kg

DRUGS (23)
  1. TIVICAY [Suspect]
     Active Substance: DOLUTEGRAVIR SODIUM
     Indication: HIV infection
     Dosage: 50 MG DAILY ORAL
     Route: 048
     Dates: start: 20200205
  2. PREZCOBIX [Suspect]
     Active Substance: COBICISTAT\DARUNAVIR ETHANOLATE
     Indication: HIV infection
     Dosage: 800-150 MGMDAILY ORAL
     Route: 048
     Dates: start: 20240202
  3. ATORVASTATIN [Suspect]
     Active Substance: ATORVASTATIN
  4. ASPIRIN [Concomitant]
     Active Substance: ASPIRIN
  5. FISH OIL [Concomitant]
     Active Substance: FISH OIL
  6. IBUPROFEN [Concomitant]
     Active Substance: IBUPROFEN
  7. TYLENOL [Concomitant]
  8. vitamin d [Concomitant]
  9. wal-zyr [Concomitant]
  10. PIOGLITAZONE [Concomitant]
     Active Substance: PIOGLITAZONE
  11. LISINOPRIL [Concomitant]
     Active Substance: LISINOPRIL
  12. SCOPOLAMINE TRANSDERM [Concomitant]
  13. METHYLPHENIDATE [Concomitant]
     Active Substance: METHYLPHENIDATE
  14. LANTUS [Concomitant]
     Active Substance: INSULIN GLARGINE
  15. EMTRICITABINE [Concomitant]
     Active Substance: EMTRICITABINE
  16. ISOSORBIDEMONONITRATE [Concomitant]
  17. TESTOSTERONE CYPIONATE [Concomitant]
     Active Substance: TESTOSTERONE CYPIONATE
  18. HUMALOG KIWKPEN [Concomitant]
  19. OZEMPIC [Concomitant]
     Active Substance: SEMAGLUTIDE
  20. BUDESONIDE/FORMETEROL [Concomitant]
  21. GABAPENTIN [Concomitant]
     Active Substance: GABAPENTIN
  22. NITROGLYCERIN [Concomitant]
     Active Substance: NITROGLYCERIN
  23. ATORVASTATIN [Concomitant]

REACTIONS (1)
  - Myopathy [None]
